FAERS Safety Report 22714925 (Version 3)
Quarter: 2025Q1

REPORT INFORMATION
  Report Type: Spontaneous
  Country: US (occurrence: US)
  Receive Date: 20230718
  Receipt Date: 20250120
  Transmission Date: 20250408
  Serious: Yes (Other)
  Sender: LEO PHARM
  Company Number: US-LEO Pharma-360321

PATIENT
  Age: 25 Year
  Sex: Female

DRUGS (2)
  1. ADBRY [Suspect]
     Active Substance: TRALOKINUMAB-LDRM
     Indication: Product used for unknown indication
     Dates: start: 202208
  2. ADBRY [Suspect]
     Active Substance: TRALOKINUMAB-LDRM
     Indication: Product used for unknown indication
     Dates: start: 202306, end: 202306

REACTIONS (1)
  - Cataract [Unknown]
